FAERS Safety Report 10687772 (Version 1)
Quarter: 2014Q4

REPORT INFORMATION
  Report Type: Spontaneous
  Country: IT (occurrence: None)
  Receive Date: 20141230
  Receipt Date: 20141230
  Transmission Date: 20150529
  Serious: Yes (Hospitalization)
  Sender: FDA-Public Use
  Company Number: 2014HINLIT1091

PATIENT
  Age: 52 Year
  Sex: Male

DRUGS (4)
  1. ZIDOVUDINE (ZIDOVUDINE) UNKNOWN) [Suspect]
     Active Substance: ZIDOVUDINE
     Indication: HIV INFECTION
     Dates: start: 2007
  2. LAMIVUDINE. [Suspect]
     Active Substance: LAMIVUDINE
     Indication: HIV INFECTION
     Dates: start: 2007
  3. RITONAVIR. [Concomitant]
     Active Substance: RITONAVIR
  4. SAQUINAVIR [Concomitant]
     Active Substance: SAQUINAVIR

REACTIONS (3)
  - Rhabdomyolysis [None]
  - Angina pectoris [None]
  - Lactic acidosis [None]
